FAERS Safety Report 8847428 (Version 1)
Quarter: 2012Q4

REPORT INFORMATION
  Report Type: 
  Country: US (occurrence: US)
  Receive Date: 20121018
  Receipt Date: 20121018
  Transmission Date: 20130627
  Serious: No
  Sender: FDA-Public Use
  Company Number: US-B.I. PHARMACEUTICALS,INC./RIDGEFIELD-2012-BP-24222BP

PATIENT
  Age: 62 Year
  Sex: Female
  Weight: 79 kg

DRUGS (12)
  1. SPIRIVA [Suspect]
     Indication: CHRONIC OBSTRUCTIVE PULMONARY DISEASE
     Dosage: 18 mcg
     Route: 055
     Dates: start: 20120930
  2. NITROGLYCERINE [Concomitant]
     Indication: CARDIAC DISORDER
     Dosage: 2.5 mg
     Route: 048
  3. NITROGLYCERINE [Concomitant]
     Indication: CHEST PAIN
  4. ASPIRIN [Concomitant]
     Dosage: 81 mg
     Route: 048
  5. SOTOLOL [Concomitant]
     Indication: CARDIAC DISORDER
     Dosage: 320 mg
     Route: 048
  6. PREVACID [Concomitant]
     Indication: GASTROOESOPHAGEAL REFLUX DISEASE
     Dosage: 60 mg
     Route: 048
  7. TRAMADOL [Concomitant]
     Indication: HEADACHE
     Route: 048
  8. LIBRIUM [Concomitant]
     Indication: ANXIETY
     Dosage: 8 mg
     Route: 048
  9. METOPROLOL [Concomitant]
     Indication: CARDIAC DISORDER
     Dosage: 50 mg
     Route: 048
  10. PLAVIX [Concomitant]
     Dosage: 75 mg
     Route: 048
  11. RANITIDINE [Concomitant]
     Indication: GASTROOESOPHAGEAL REFLUX DISEASE
     Dosage: 300 mg
     Route: 048
  12. LISINOPRIL [Concomitant]
     Indication: HYPERTENSION
     Dosage: 20 mg
     Route: 048

REACTIONS (1)
  - Eye disorder [Recovered/Resolved]
